FAERS Safety Report 15655991 (Version 1)
Quarter: 2018Q4

REPORT INFORMATION
  Report Type: Spontaneous
  Country: US (occurrence: US)
  Receive Date: 20181126
  Receipt Date: 20181126
  Transmission Date: 20190205
  Serious: No
  Sender: FDA-Public Use
  Company Number: US-GLAXOSMITHKLINE-US2018GSK208260

PATIENT
  Sex: Female

DRUGS (1)
  1. LAMICTAL [Suspect]
     Active Substance: LAMOTRIGINE
     Indication: PRODUCT USED FOR UNKNOWN INDICATION

REACTIONS (7)
  - Product use issue [Unknown]
  - Therapeutic response unexpected [Unknown]
  - Ill-defined disorder [Unknown]
  - Nocturnal fear [Unknown]
  - Feeling abnormal [Unknown]
  - Nightmare [Unknown]
  - Fear [Unknown]
